FAERS Safety Report 12432980 (Version 4)
Quarter: 2019Q2

REPORT INFORMATION
  Report Type: Spontaneous
  Country: US (occurrence: US)
  Receive Date: 20160603
  Receipt Date: 20190408
  Transmission Date: 20190711
  Serious: Yes (Hospitalization, Other)
  Sender: FDA-Public Use
  Company Number: US-DSJP-DSU-2015-121219

PATIENT

DRUGS (7)
  1. BENICAR HCT [Suspect]
     Active Substance: HYDROCHLOROTHIAZIDE\OLMESARTAN MEDOXOMIL
     Dosage: 40/12.5 MG, UNK
  2. COUMADIN [Concomitant]
     Active Substance: WARFARIN SODIUM
     Indication: PRODUCT USED FOR UNKNOWN INDICATION
     Dosage: 5 MG, QD
  3. BENICAR [Suspect]
     Active Substance: OLMESARTAN MEDOXOMIL
     Indication: HYPERTENSION
     Dosage: 40 MG, QD
     Route: 048
     Dates: start: 2012, end: 2013
  4. BENICAR [Suspect]
     Active Substance: OLMESARTAN MEDOXOMIL
     Dosage: 20 MG, QD
     Route: 048
     Dates: start: 20140312, end: 20140912
  5. MOTRIN [Concomitant]
     Active Substance: IBUPROFEN
     Indication: PAIN
     Dosage: 600 MG, AS NEEDED
  6. MULTIVITAMIN                       /00097801/ [Concomitant]
     Active Substance: VITAMINS
     Indication: PRODUCT USED FOR UNKNOWN INDICATION
     Dosage: UNK UNK, QD
     Route: 048
  7. BENICAR HCT [Suspect]
     Active Substance: HYDROCHLOROTHIAZIDE\OLMESARTAN MEDOXOMIL
     Indication: HYPERTENSION
     Dosage: 20-12.5MG, QD
     Dates: start: 20050101, end: 20121031

REACTIONS (18)
  - Presyncope [Unknown]
  - Sprue-like enteropathy [Recovering/Resolving]
  - Haemorrhoids [Not Recovered/Not Resolved]
  - Clostridium difficile colitis [Recovering/Resolving]
  - Coeliac disease [Recovering/Resolving]
  - Reactive gastropathy [Unknown]
  - Gastroenteritis viral [Recovered/Resolved]
  - Ileus [Unknown]
  - Pyrexia [Recovering/Resolving]
  - Liver function test abnormal [Unknown]
  - Cholelithiasis [Unknown]
  - Gastrooesophageal reflux disease [Not Recovered/Not Resolved]
  - Diverticulum [Unknown]
  - Acute kidney injury [Recovering/Resolving]
  - Hypotension [Recovering/Resolving]
  - Hiatus hernia [Unknown]
  - Large intestine polyp [Unknown]
  - Constipation [Unknown]

NARRATIVE: CASE EVENT DATE: 2006
